FAERS Safety Report 10151525 (Version 2)
Quarter: 2014Q2

REPORT INFORMATION
  Report Type: Spontaneous
  Country: DE (occurrence: DE)
  Receive Date: 20140503
  Receipt Date: 20140506
  Transmission Date: 20141212
  Serious: Yes (Death, Hospitalization)
  Sender: FDA-Public Use
  Company Number: PHHY2014DE053487

PATIENT
  Age: 39 Year
  Sex: Female

DRUGS (10)
  1. CICLOSPORIN [Suspect]
     Indication: IMMUNOSUPPRESSION
     Dosage: 5 MG/KG BODY WEIGHT
  2. DEXAMETHASONE [Suspect]
     Indication: IMMUNOSUPPRESSION
     Dosage: 12 MG PER DAY
  3. ALEMTUZUMAB [Suspect]
     Indication: IMMUNOSUPPRESSION
     Dosage: 3 MG, UNK
  4. ALEMTUZUMAB [Suspect]
     Dosage: 5 MG, UNK
  5. ALEMTUZUMAB [Suspect]
     Dosage: 10 MG, UNK
  6. ETOPOSIDE [Suspect]
     Indication: IMMUNOSUPPRESSION
     Dosage: 270 MG, WEEKLY
  7. PREDNISONE [Suspect]
     Indication: IMMUNOSUPPRESSION
     Dosage: 100 MG, PER DAY
     Route: 042
  8. RITUXIMAB [Suspect]
     Indication: IMMUNOSUPPRESSION
     Dosage: 375 MG/M2, WEEKLY (FOUR TIMES)
  9. RITUXIMAB [Suspect]
     Indication: EPSTEIN-BARR VIRUS INFECTION
  10. IMMUNOGLOBULIN I.V [Suspect]
     Indication: IMMUNOSUPPRESSION
     Dosage: 30 G, PER DAY
     Route: 042

REACTIONS (6)
  - Haemorrhage intracranial [Fatal]
  - Histiocytosis haematophagic [Fatal]
  - Pancytopenia [Unknown]
  - Coagulopathy [Unknown]
  - Gastrointestinal haemorrhage [Unknown]
  - Drug ineffective [Unknown]
